FAERS Safety Report 10931258 (Version 1)
Quarter: 2015Q1

REPORT INFORMATION
  Report Type: Spontaneous
  Country: US (occurrence: None)
  Receive Date: 20150316
  Receipt Date: 20150316
  Transmission Date: 20150721
  Serious: Yes (Other)
  Sender: FDA-Public Use
  Company Number: 201411130

PATIENT
  Age: 62 Year
  Sex: Male
  Weight: 108.86 kg

DRUGS (3)
  1. XIAFLEX [Suspect]
     Active Substance: COLLAGENASE CLOSTRIDIUM HISTOLYTICUM
     Indication: PEYRONIE^S DISEASE
     Dosage: INTRALESIONAL
     Dates: start: 20141113, end: 20141113
  2. OMEPRAZOLE. [Concomitant]
     Active Substance: OMEPRAZOLE
  3. MULTIVITAMINS [Concomitant]
     Active Substance: VITAMINS

REACTIONS (10)
  - Penile size reduced [None]
  - Fracture of penis [None]
  - Penile pain [None]
  - Penile swelling [None]
  - Skin discolouration [None]
  - Drug ineffective [None]
  - Abdominal pain lower [None]
  - Injection site mass [None]
  - Paraesthesia [None]
  - Abdominal tenderness [None]

NARRATIVE: CASE EVENT DATE: 201501
